FAERS Safety Report 24740412 (Version 5)
Quarter: 2025Q2

REPORT INFORMATION
  Report Type: Report from Study
  Country: US (occurrence: US)
  Receive Date: 20241216
  Receipt Date: 20250409
  Transmission Date: 20250717
  Serious: Yes (Other)
  Sender: NOVARTIS
  Company Number: US-002147023-NVSC2024US238015

PATIENT
  Sex: Male

DRUGS (2)
  1. ENTRESTO [Suspect]
     Active Substance: SACUBITRIL\VALSARTAN
     Indication: Product used for unknown indication
     Route: 065
  2. ENTRESTO [Suspect]
     Active Substance: SACUBITRIL\VALSARTAN
     Dosage: 24-26 MG, BID (TAKE ONE-HALF TABLET BY MOUTH TWICE DAILY)
     Route: 048
     Dates: start: 20250108

REACTIONS (8)
  - Cardiac failure congestive [Unknown]
  - COVID-19 [Unknown]
  - Drug ineffective [Unknown]
  - Blood pressure abnormal [Unknown]
  - Wrong technique in product usage process [Unknown]
  - Influenza virus test positive [Unknown]
  - Blood pressure fluctuation [Unknown]
  - Hypotension [Unknown]
